FAERS Safety Report 8838415 (Version 3)
Quarter: 2013Q1

REPORT INFORMATION
  Report Type: Spontaneous
  Country: US (occurrence: US)
  Receive Date: 20121012
  Receipt Date: 20130121
  Transmission Date: 20140127
  Serious: No
  Sender: FDA-Public Use
  Company Number: US-009507513-1209USA011216

PATIENT
  Age: 18 Year
  Sex: Female
  Weight: 48.73 kg

DRUGS (1)
  1. IMPLANON [Suspect]
     Indication: CONTRACEPTION
     Dosage: 1 DF, UNK
     Route: 058
     Dates: start: 20110912, end: 20120928

REACTIONS (2)
  - Body tinea [Recovered/Resolved]
  - Rash pruritic [Recovered/Resolved]
